FAERS Safety Report 5771442-7 (Version None)
Quarter: 2008Q2

REPORT INFORMATION
  Report Type: 
  Country: None (occurrence: None)
  Receive Date: 20080613
  Receipt Date: 20080610
  Transmission Date: 20081010
  Serious: Yes (Hospitalization)
  Sender: FDA-Public Use
  Company Number: US-WYE-H04446308

PATIENT

DRUGS (6)
  1. SIROLIMUS [Suspect]
     Indication: IMMUNOSUPPRESSANT DRUG THERAPY
     Route: 048
  2. SIROLIMUS [Interacting]
     Route: 048
  3. SIROLIMUS [Interacting]
     Route: 048
  4. TACROLIMUS [Interacting]
     Dosage: CONCENTRATIONS ^WITHIN NORMAL LIMITS^ OF 4 - 6.7 NG/ML
  5. VORICONAZOLE [Interacting]
     Indication: ANTIFUNGAL PROPHYLAXIS
     Route: 042
  6. VORICONAZOLE [Interacting]
     Route: 048

REACTIONS (3)
  - DRUG INTERACTION [None]
  - LEUKOPENIA [None]
  - RENAL IMPAIRMENT [None]
